FAERS Safety Report 7660513-6 (Version None)
Quarter: 2011Q3

REPORT INFORMATION
  Report Type: 
  Country: None (occurrence: None)
  Receive Date: 20110805
  Receipt Date: 20110729
  Transmission Date: 20111222
  Serious: Yes (Hospitalization, Disabling)
  Sender: FDA-Public Use
  Company Number: GB-MERCK-1108GBR00009

PATIENT
  Age: 53 Year
  Sex: Female
  Weight: 104 kg

DRUGS (11)
  1. CODEINE [Concomitant]
     Indication: PAIN
     Route: 065
  2. PERINDOPRIL [Concomitant]
     Indication: HYPERTENSION
     Route: 065
  3. BECLOMETHASONE DIPROPIONATE [Concomitant]
     Route: 055
  4. FOSAMAX [Suspect]
     Indication: OSTEOPOROSIS
     Route: 048
     Dates: start: 20110317, end: 20110519
  5. SIMVASTATIN [Concomitant]
     Indication: BLOOD CHOLESTEROL INCREASED
     Route: 048
  6. ACETAMINOPHEN [Concomitant]
     Indication: PAIN
     Route: 065
  7. ALBUTEROL [Concomitant]
     Indication: WHEEZING
     Route: 055
  8. CALCIUM (UNSPECIFIED) AND CHOLECALCIFEROL [Concomitant]
     Indication: OSTEOPOROSIS
     Route: 048
  9. ASPIRIN [Concomitant]
     Indication: ANTICOAGULANT THERAPY
     Route: 048
  10. LANSOPRAZOLE [Concomitant]
     Indication: DYSPEPSIA
     Route: 065
  11. PAROXETINE [Concomitant]
     Indication: FLUSHING
     Route: 065

REACTIONS (1)
  - FEMORAL NECK FRACTURE [None]
